FAERS Safety Report 7803823-1 (Version None)
Quarter: 2011Q4

REPORT INFORMATION
  Report Type: 
  Country: None (occurrence: None)
  Receive Date: 20111010
  Receipt Date: 20110929
  Transmission Date: 20120403
  Serious: Yes (Hospitalization, Disabling, Other)
  Sender: FDA-Public Use
  Company Number: PHHY2011AU51789

PATIENT
  Sex: Male

DRUGS (12)
  1. ATORVASTATIN [Concomitant]
     Dosage: 40 MG NOCT
  2. FOLIC ACID [Concomitant]
     Dosage: 5 MG DAILY
  3. MOVIPREP [Concomitant]
     Dosage: 1 DF, 1 TO 2 SACHET DAILY
  4. CLOZAPINE [Suspect]
     Dosage: 600 MG
     Dates: start: 20110919
  5. CLOZAPINE [Suspect]
     Dosage: 550 MG, UNK
  6. ANTIBIOTICS [Concomitant]
  7. CLOZAPINE [Suspect]
     Dosage: 700 MG
     Dates: start: 20041223
  8. AMISULPRIDE [Concomitant]
     Dosage: 400 MG, IN MORNING
  9. ALENDRONATE SODIUM [Concomitant]
     Dosage: 70 MG, WEEKLY
  10. ATENOLOL [Concomitant]
     Dosage: 50 MG IN THE MORNING
  11. VITAMIN B12 FOR INJECTION [Concomitant]
     Dosage: 1000MCG EVERY 3 MONTHS
  12. CALCIUM WITH VITAMIN D [Concomitant]

REACTIONS (12)
  - URINARY TRACT INFECTION [None]
  - MOBILITY DECREASED [None]
  - MULTIPLE SCLEROSIS [None]
  - DEPRESSION [None]
  - ANTIPSYCHOTIC DRUG LEVEL ABOVE THERAPEUTIC [None]
  - URINARY RETENTION [None]
  - NEGLECT OF PERSONAL APPEARANCE [None]
  - CONSTIPATION [None]
  - GENERAL PHYSICAL CONDITION [None]
  - BACK PAIN [None]
  - PSYCHIATRIC SYMPTOM [None]
  - ASTHENIA [None]
